FAERS Safety Report 15936587 (Version 4)
Quarter: 2019Q1

REPORT INFORMATION
  Report Type: Report from Study
  Country: BR (occurrence: BR)
  Receive Date: 20190208
  Receipt Date: 20190305
  Transmission Date: 20190417
  Serious: Yes (Hospitalization)
  Sender: FDA-Public Use
  Company Number: BR-ROCHE-2088918

PATIENT
  Age: 57 Year
  Sex: Male
  Weight: 85.8 kg

DRUGS (10)
  1. ROSUVASTATIN. [Concomitant]
     Active Substance: ROSUVASTATIN
     Indication: DYSLIPIDAEMIA
     Route: 065
     Dates: start: 20180604, end: 20180831
  2. DEXAMETHASONE. [Concomitant]
     Active Substance: DEXAMETHASONE
     Route: 065
     Dates: start: 20150909
  3. METHYLPREDNISOLONE. [Concomitant]
     Active Substance: METHYLPREDNISOLONE
     Dosage: SAME DOSE ON 05/DEC/2012, 08/MAY/2013, 22/MAY/2013, 06/NOV/2013, 23/OCT/2013, 09/APR/2014,  05/MAY/2
     Route: 065
     Dates: start: 20121121
  4. LORATADINE. [Concomitant]
     Active Substance: LORATADINE
     Dosage: SAME DOSE ON 08/OCT/2014, , 11/MAR/2015, 25/MAR/2015, 27/AUG/2015, 09/SEP/2015,  15/FEB/2016, 07/MAR
     Route: 065
     Dates: start: 20141008
  5. PARACETAMOL [Concomitant]
     Active Substance: ACETAMINOPHEN
     Route: 065
     Dates: start: 20121121
  6. OCRELIZUMAB. [Suspect]
     Active Substance: OCRELIZUMAB
     Indication: PRIMARY PROGRESSIVE MULTIPLE SCLEROSIS
     Dosage: TWO INFUSIONS SEPARATED BY 14 DAYS IN EACH TREATMENT CYCLE OF 24 WEEK. ?SUBSEQUENT DOSES OF OCRELIZU
     Route: 042
     Dates: start: 20160215
  7. PARACETAMOL [Concomitant]
     Active Substance: ACETAMINOPHEN
     Dosage: SAME DOSE ON 08/MAY/2013, 22/MAY/2013, 06/NOV/2013, 23/OCT/2013, 09/APR/2014,  05/MAY/2014,  22/SEP/
     Route: 065
     Dates: start: 20121205
  8. PROMETHAZINE [Concomitant]
     Active Substance: PROMETHAZINE\PROMETHAZINE HYDROCHLORIDE
     Dosage: AND ON 21/NOV/2012
     Route: 065
     Dates: start: 20121205
  9. PROMETHAZINE [Concomitant]
     Active Substance: PROMETHAZINE\PROMETHAZINE HYDROCHLORIDE
     Dosage: SAME DOSE ON 22/MAY/2013, 06/NOV/2013, 23/OCT/2013, 09/APR/2014, 05/MAY/2014,  22/SEP/2014.
     Route: 065
     Dates: start: 20130508
  10. OCRELIZUMAB. [Suspect]
     Active Substance: OCRELIZUMAB
     Indication: PRIMARY PROGRESSIVE MULTIPLE SCLEROSIS
     Dosage: TWO INFUSIONS SEPARATED BY 14 DAYS IN EACH TREATMENT CYCLE OF 24 WEEK.?SUBSEQUENT DOSES OF BLINDED O
     Route: 042
     Dates: start: 20121121, end: 20160214

REACTIONS (1)
  - Urinary tract infection [Recovered/Resolved]

NARRATIVE: CASE EVENT DATE: 20180307
